FAERS Safety Report 16239156 (Version 2)
Quarter: 2019Q2

REPORT INFORMATION
  Report Type: Report from Study
  Country: US (occurrence: US)
  Receive Date: 20190425
  Receipt Date: 20190627
  Transmission Date: 20190711
  Serious: Yes (Other)
  Sender: FDA-Public Use
  Company Number: US-SA-2019SA113068

PATIENT
  Age: 36 Year
  Sex: Female

DRUGS (1)
  1. TERIFLUNOMIDE. [Suspect]
     Active Substance: TERIFLUNOMIDE
     Indication: MULTIPLE SCLEROSIS
     Dosage: 14 MG, QD
     Route: 048
     Dates: start: 20190106, end: 201904

REACTIONS (15)
  - Influenza like illness [Unknown]
  - Pain [Unknown]
  - General physical health deterioration [Unknown]
  - Hypoaesthesia [Unknown]
  - Burning sensation [Not Recovered/Not Resolved]
  - Neck injury [Not Recovered/Not Resolved]
  - Pain in extremity [Unknown]
  - Confusional state [Unknown]
  - Alopecia [Unknown]
  - Pain in extremity [Unknown]
  - Nausea [Unknown]
  - Multiple sclerosis [Unknown]
  - Accident [Not Recovered/Not Resolved]
  - Fatigue [Unknown]
  - Unevaluable event [Unknown]

NARRATIVE: CASE EVENT DATE: 20190331
